FAERS Safety Report 8920395 (Version 1)
Quarter: 2012Q4

REPORT INFORMATION
  Report Type: Report from Study
  Country: DE (occurrence: DE)
  Receive Date: 20121121
  Receipt Date: 20121121
  Transmission Date: 20130627
  Serious: Yes (Other)
  Sender: FDA-Public Use
  Company Number: DE-ROCHE-1156588

PATIENT
  Age: 75 Year
  Sex: Female

DRUGS (2)
  1. INTERFERON NOS [Suspect]
     Indication: HEPATITIS C
     Route: 065
     Dates: start: 2004
  2. RIBAVIRIN [Suspect]
     Indication: HEPATITIS C
     Route: 065
     Dates: start: 2004

REACTIONS (2)
  - Blood count abnormal [Unknown]
  - No therapeutic response [Unknown]
